FAERS Safety Report 6344001-5 (Version None)
Quarter: 2009Q3

REPORT INFORMATION
  Report Type: 
  Country: None (occurrence: None)
  Receive Date: 20090904
  Receipt Date: 20090904
  Transmission Date: 20100115
  Serious: Yes (Hospitalization)
  Sender: FDA-Public Use
  Company Number: None

PATIENT
  Sex: Female
  Weight: 68.4932 kg

DRUGS (1)
  1. DIVALPROEX DR 500MG UPSHER-SMITH [Suspect]
     Indication: MOOD ALTERED
     Dosage: 1000MG TWICE A DAY PO
     Route: 048
     Dates: start: 20090428, end: 20090522

REACTIONS (10)
  - AGITATION [None]
  - AMMONIA INCREASED [None]
  - CONFUSIONAL STATE [None]
  - CONVULSION [None]
  - DEHYDRATION [None]
  - HEPATIC ENCEPHALOPATHY [None]
  - HYPOPHAGIA [None]
  - IRRITABILITY [None]
  - LETHARGY [None]
  - SCREAMING [None]
